FAERS Safety Report 18985437 (Version 2)
Quarter: 2021Q1

REPORT INFORMATION
  Report Type: Spontaneous
  Country: DE (occurrence: DE)
  Receive Date: 20210309
  Receipt Date: 20210321
  Transmission Date: 20210420
  Serious: Yes (Other)
  Sender: FDA-Public Use
  Company Number: DE-AUROBINDO-AUR-APL-2019-051416

PATIENT
  Age: 36 Year
  Sex: Male
  Weight: 72 kg

DRUGS (29)
  1. RITUXAN [Concomitant]
     Active Substance: RITUXIMAB
     Indication: NON-HODGKIN^S LYMPHOMA
     Route: 042
     Dates: start: 200204, end: 200207
  2. ZEVALIN [Suspect]
     Active Substance: IBRITUMOMAB TIUXETAN
     Route: 042
     Dates: start: 20040930, end: 20040930
  3. ZEVALIN [Suspect]
     Active Substance: IBRITUMOMAB TIUXETAN
     Dosage: 28.4 DOSAGE FORM, ONCE A DAY
     Route: 042
     Dates: start: 20040930, end: 20040930
  4. ETOPOSIDE. [Concomitant]
     Active Substance: ETOPOSIDE
     Dates: start: 200209, end: 200209
  5. PREDNISONE. [Concomitant]
     Active Substance: PREDNISONE
     Dates: start: 200408, end: 200408
  6. CISPLATIN. [Concomitant]
     Active Substance: CISPLATIN
     Indication: NON-HODGKIN^S LYMPHOMA
     Dates: start: 200209, end: 200209
  7. MABTHERA [Suspect]
     Active Substance: RITUXIMAB
     Dosage: UNK
     Route: 040
     Dates: start: 20040930, end: 20050502
  8. CYCLOPHOSPHAMIDE. [Concomitant]
     Active Substance: CYCLOPHOSPHAMIDE
     Dates: start: 200408, end: 200408
  9. ETOPOSIDE. [Concomitant]
     Active Substance: ETOPOSIDE
     Indication: NON-HODGKIN^S LYMPHOMA
     Dates: start: 20020303, end: 20020303
  10. PREDNISONE. [Concomitant]
     Active Substance: PREDNISONE
     Indication: NON-HODGKIN^S LYMPHOMA
     Dates: start: 20020303, end: 20020303
  11. DEXAMETHASONE. [Concomitant]
     Active Substance: DEXAMETHASONE
     Indication: NON-HODGKIN^S LYMPHOMA
     Dates: start: 200209, end: 200209
  12. ENOXAPARIN [Concomitant]
     Active Substance: ENOXAPARIN
     Indication: DEEP VEIN THROMBOSIS
     Route: 058
     Dates: start: 20050323
  13. ZEVALIN [Suspect]
     Active Substance: IBRITUMOMAB TIUXETAN
     Indication: DIFFUSE LARGE B-CELL LYMPHOMA
     Route: 042
     Dates: start: 200409, end: 200409
  14. ZEVALIN [Suspect]
     Active Substance: IBRITUMOMAB TIUXETAN
     Dosage: 28 MILLICURIE
     Route: 042
     Dates: start: 20040930, end: 20040930
  15. VINCRISTINE [Concomitant]
     Active Substance: VINCRISTINE
     Indication: NON-HODGKIN^S LYMPHOMA
     Dates: start: 20020303, end: 20020303
  16. MABTHERA [Suspect]
     Active Substance: RITUXIMAB
     Indication: DIFFUSE LARGE B-CELL LYMPHOMA
     Dosage: 1 DOSAGE FORM
     Route: 042
     Dates: start: 20040930, end: 20040930
  17. YTRACIS [Suspect]
     Active Substance: YTTRIUM CHLORIDE Y-90
     Indication: DIFFUSE LARGE B-CELL LYMPHOMA
     Dosage: 28.4 DOSAGE FORM, ONCE A DAY
     Route: 042
     Dates: start: 20040930, end: 20040930
  18. DOXORUBICIN [Concomitant]
     Active Substance: DOXORUBICIN
     Indication: NON-HODGKIN^S LYMPHOMA
     Dates: start: 20020303, end: 20020303
  19. CYTARABINE. [Concomitant]
     Active Substance: CYTARABINE
     Dates: start: 200310, end: 200310
  20. MABTHERA [Suspect]
     Active Substance: RITUXIMAB
     Dosage: 1 DOSAGE FORM
     Route: 042
     Dates: start: 200409, end: 200409
  21. METHOTREXATE. [Concomitant]
     Active Substance: METHOTREXATE
     Indication: NON-HODGKIN^S LYMPHOMA
     Dates: start: 200209, end: 200209
  22. METHOTREXATE. [Concomitant]
     Active Substance: METHOTREXATE
     Dates: start: 200310, end: 200310
  23. CARMUSTINE. [Concomitant]
     Active Substance: CARMUSTINE
     Indication: NON-HODGKIN^S LYMPHOMA
     Dates: start: 200310, end: 200310
  24. PIXANTRONE [Concomitant]
     Active Substance: PIXANTRONE
     Indication: NON-HODGKIN^S LYMPHOMA
     Dates: start: 200408, end: 200408
  25. CYCLOPHOSPHAMIDE. [Concomitant]
     Active Substance: CYCLOPHOSPHAMIDE
     Indication: NON-HODGKIN^S LYMPHOMA
     Dates: start: 20020303, end: 20020303
  26. CYCLOPHOSPHAMIDE. [Concomitant]
     Active Substance: CYCLOPHOSPHAMIDE
     Dates: start: 200209, end: 200209
  27. VINCRISTINE [Concomitant]
     Active Substance: VINCRISTINE
     Dates: start: 200408, end: 200408
  28. ETOPOSIDE. [Concomitant]
     Active Substance: ETOPOSIDE
     Dates: start: 200310, end: 200310
  29. CYTARABINE. [Concomitant]
     Active Substance: CYTARABINE
     Indication: NON-HODGKIN^S LYMPHOMA
     Dates: start: 200209, end: 200209

REACTIONS (14)
  - Pyrexia [Recovered/Resolved]
  - Thrombophlebitis [Recovered/Resolved]
  - Vasculitis [Unknown]
  - Arthritis reactive [Recovered/Resolved]
  - Disease progression [Not Recovered/Not Resolved]
  - Malignant neoplasm progression [Unknown]
  - Arthralgia [Recovered/Resolved]
  - Arthralgia [Not Recovered/Not Resolved]
  - Paraneoplastic syndrome [Unknown]
  - Pyrexia [Recovered/Resolved]
  - Thrombocytopenia [Unknown]
  - Anaemia [Unknown]
  - Chills [Recovered/Resolved]
  - Pelvic venous thrombosis [Not Recovered/Not Resolved]

NARRATIVE: CASE EVENT DATE: 200412
